FAERS Safety Report 18923796 (Version 3)
Quarter: 2023Q4

REPORT INFORMATION
  Report Type: Report from Study
  Country: US (occurrence: US)
  Receive Date: 20210222
  Receipt Date: 20231114
  Transmission Date: 20240110
  Serious: Yes (Other)
  Sender: FDA-Public Use
  Company Number: US-SHIRE-US202012382

PATIENT
  Sex: Female

DRUGS (1)
  1. HUMAN IMMUNOGLOBULIN G [Suspect]
     Active Substance: HUMAN IMMUNOGLOBULIN G
     Indication: Immunodeficiency common variable
     Dosage: UNK
     Route: 042

REACTIONS (11)
  - Impaired gastric emptying [Unknown]
  - Crohn^s disease [Unknown]
  - Feeling abnormal [Unknown]
  - Pain [Unknown]
  - Fatigue [Unknown]
  - Headache [Unknown]
  - Insurance issue [Unknown]
  - Neuralgia [Unknown]
  - Back pain [Unknown]
  - Inappropriate schedule of product administration [Unknown]
  - Product dose omission issue [Unknown]
